FAERS Safety Report 7215268-6 (Version None)
Quarter: 2011Q1

REPORT INFORMATION
  Report Type: 
  Country: None (occurrence: None)
  Receive Date: 20110107
  Receipt Date: 20110104
  Transmission Date: 20110831
  Serious: Yes (Death)
  Sender: FDA-Public Use
  Company Number: US-KINGPHARMUSA00001-K201100019

PATIENT
  Age: 38 Year
  Sex: Male

DRUGS (8)
  1. ACETAMINOPHEN [Suspect]
     Indication: COMPLETED SUICIDE
     Dosage: UNK
     Route: 048
  2. SODIUM SALICYLATE ECT [Suspect]
     Indication: COMPLETED SUICIDE
     Dosage: UNK
     Route: 048
  3. LAMOTRIGINE [Suspect]
     Indication: COMPLETED SUICIDE
     Dosage: UNK
     Route: 048
  4. SKELAXIN [Suspect]
     Indication: COMPLETED SUICIDE
     Dosage: UNK
     Route: 048
  5. CAFFEINE [Suspect]
     Indication: COMPLETED SUICIDE
     Dosage: UNK
     Route: 048
  6. CADUET [Suspect]
     Indication: COMPLETED SUICIDE
     Dosage: UNK
     Route: 048
  7. CLONAZEPAM [Suspect]
     Indication: COMPLETED SUICIDE
     Dosage: UNK
     Route: 048
  8. ALLOPURINOL [Suspect]
     Indication: COMPLETED SUICIDE
     Dosage: UNK
     Route: 048

REACTIONS (1)
  - COMPLETED SUICIDE [None]
